FAERS Safety Report 19740556 (Version 2)
Quarter: 2021Q3

REPORT INFORMATION
  Report Type: Spontaneous
  Country: GB (occurrence: GB)
  Receive Date: 20210824
  Receipt Date: 20210901
  Transmission Date: 20211014
  Serious: Yes (Hospitalization, Other)
  Sender: FDA-Public Use
  Company Number: GB-ACCORD-236006

PATIENT
  Age: 72 Year
  Sex: Female
  Weight: 62.59 kg

DRUGS (4)
  1. OMEPRAZOLE. [Concomitant]
     Active Substance: OMEPRAZOLE
     Indication: ILL-DEFINED DISORDER
  2. AMLODIPINE [Concomitant]
     Active Substance: AMLODIPINE BESYLATE
     Indication: ILL-DEFINED DISORDER
  3. PRAVASTATIN. [Suspect]
     Active Substance: PRAVASTATIN
     Indication: ILL-DEFINED DISORDER
     Dosage: 20MG
     Route: 048
     Dates: start: 20210329, end: 20210806
  4. DEPEFEX XL [Concomitant]
     Indication: ILL-DEFINED DISORDER

REACTIONS (3)
  - Liver function test increased [Recovering/Resolving]
  - Pruritus [Recovering/Resolving]
  - Arthralgia [Recovering/Resolving]

NARRATIVE: CASE EVENT DATE: 20210501
